FAERS Safety Report 7995200-8 (Version None)
Quarter: 2011Q4

REPORT INFORMATION
  Report Type: 
  Country: None (occurrence: None)
  Receive Date: 20111220
  Receipt Date: 20111216
  Transmission Date: 20120403
  Serious: Yes (Hospitalization)
  Sender: FDA-Public Use
  Company Number: GB-JNJFOC-20111203965

PATIENT
  Sex: Female

DRUGS (3)
  1. NICORETTE [Suspect]
     Indication: SMOKING CESSATION THERAPY
     Route: 048
  2. NICOTINE [Suspect]
     Indication: SMOKING CESSATION THERAPY
     Dosage: ^HIGHER STRENGTH^
     Route: 062
  3. NICOTINE [Suspect]
     Route: 062

REACTIONS (2)
  - ANAPHYLACTIC SHOCK [None]
  - PRODUCT QUALITY ISSUE [None]
